FAERS Safety Report 21673224 (Version 1)
Quarter: 2022Q4

REPORT INFORMATION
  Report Type: Report from Study
  Country: FR (occurrence: FR)
  Receive Date: 20221202
  Receipt Date: 20221202
  Transmission Date: 20230113
  Serious: Yes (Other)
  Sender: FDA-Public Use
  Company Number: FR-JNJFOC-20221157653

PATIENT
  Age: 67 Year
  Sex: Female

DRUGS (4)
  1. VELCADE [Suspect]
     Active Substance: BORTEZOMIB
     Indication: Plasma cell myeloma
     Dosage: 2.2 MG/DOSE 2 DOSE(S)/WEEK 2 WEEK(S)/CYCLE
     Route: 065
     Dates: end: 20201205
  2. DARZALEX [Suspect]
     Active Substance: DARATUMUMAB
     Indication: Plasma cell myeloma
     Dosage: 1020 MG/DOSE 1 DOSE(S)/WEEK 3 WEEK(S)/CYCLE
     Route: 065
     Dates: end: 20201205
  3. DEXAMETHASONE [Suspect]
     Active Substance: DEXAMETHASONE
     Indication: Plasma cell myeloma
     Dosage: 4CP/WEEK FOR 2 WEEKS THEN 2CP/WEEK FOR ONE WEEK
     Route: 065
     Dates: end: 20201205
  4. DEXAMETHASONE [Suspect]
     Active Substance: DEXAMETHASONE
     Dosage: 2CP/WEEK FOR ONE WEEK
     Route: 065
     Dates: end: 20201205

REACTIONS (1)
  - Pathological fracture [Unknown]

NARRATIVE: CASE EVENT DATE: 20201205
